FAERS Safety Report 7177850-4 (Version None)
Quarter: 2010Q4

REPORT INFORMATION
  Report Type: 
  Country: None (occurrence: None)
  Receive Date: 20101220
  Receipt Date: 20101209
  Transmission Date: 20110411
  Serious: Yes (Other)
  Sender: FDA-Public Use
  Company Number: GXKR2010US13994

PATIENT

DRUGS (5)
  1. VANCOMYCIN [Suspect]
     Route: 065
  2. AMPICILLIN (NGX) [Suspect]
  3. CEFTRIAXONE SODIUM [Suspect]
  4. FLUCONAZOL (NGX) [Suspect]
  5. PIPERACILLIN+TAZOBACTAM (NGX) [Suspect]

REACTIONS (1)
  - DRUG RASH WITH EOSINOPHILIA AND SYSTEMIC SYMPTOMS [None]
